FAERS Safety Report 16864046 (Version 1)
Quarter: 2019Q3

REPORT INFORMATION
  Report Type: Report from Study
  Country: US (occurrence: US)
  Receive Date: 20190927
  Receipt Date: 20190927
  Transmission Date: 20191005
  Serious: Yes (Other)
  Sender: FDA-Public Use
  Company Number: US-TAKEDA-2019TUS053990

PATIENT
  Age: 70 Year
  Sex: Male
  Weight: 113.37 kg

DRUGS (1)
  1. BORTEZOMIB. [Suspect]
     Active Substance: BORTEZOMIB
     Indication: PLASMA CELL MYELOMA
     Dosage: 3000 MICROGRAM
     Route: 058
     Dates: start: 20180326

REACTIONS (2)
  - Squamous cell carcinoma [Unknown]
  - Product physical issue [Unknown]

NARRATIVE: CASE EVENT DATE: 20190814
